FAERS Safety Report 10765747 (Version 1)
Quarter: 2015Q1

REPORT INFORMATION
  Report Type: Spontaneous
  Country: US (occurrence: None)
  Receive Date: 20150204
  Receipt Date: 20150204
  Transmission Date: 20150721
  Serious: No
  Sender: FDA-Public Use
  Company Number: None

PATIENT
  Age: 55 Year
  Sex: Male
  Weight: 90.6 kg

DRUGS (9)
  1. FOLIC ACID. [Concomitant]
     Active Substance: FOLIC ACID
  2. MULTIVITAMIN [Concomitant]
     Active Substance: VITAMINS
  3. RIVAROXABAN 20 MG JANSSEN [Suspect]
     Active Substance: RIVAROXABAN
     Indication: DEEP VEIN THROMBOSIS
     Dosage: RIVAROXABAN QD ORAL
     Route: 048
  4. CHLORTHALIDONE. [Concomitant]
     Active Substance: CHLORTHALIDONE
  5. SILDENAFIL. [Concomitant]
     Active Substance: SILDENAFIL
  6. ENBREL [Concomitant]
     Active Substance: ETANERCEPT
  7. FLUOROURACIL. [Concomitant]
     Active Substance: FLUOROURACIL
  8. METHOTREXATE [Concomitant]
     Active Substance: METHOTREXATE
  9. TRAMADOL [Concomitant]
     Active Substance: TRAMADOL

REACTIONS (1)
  - Thrombosis [None]

NARRATIVE: CASE EVENT DATE: 20150201
